FAERS Safety Report 18041430 (Version 1)
Quarter: 2020Q3

REPORT INFORMATION
  Report Type: Report from Study
  Country: None (occurrence: IT)
  Receive Date: 20200719
  Receipt Date: 20200719
  Transmission Date: 20201103
  Serious: Yes (Death)
  Sender: FDA-Public Use
  Company Number: IT-ABBVIE-20K-083-3488099-00

PATIENT
  Age: 11 Year

DRUGS (2)
  1. NAVITOCLAX [Suspect]
     Active Substance: NAVITOCLAX
     Indication: LYMPHOCYTIC LEUKAEMIA
     Route: 065
     Dates: start: 202006
  2. VENETOCLAX. [Suspect]
     Active Substance: VENETOCLAX
     Indication: LYMPHOCYTIC LEUKAEMIA
     Route: 048
     Dates: start: 202006

REACTIONS (2)
  - Off label use [Unknown]
  - Lymphocytic leukaemia [Fatal]

NARRATIVE: CASE EVENT DATE: 2020
